FAERS Safety Report 23333448 (Version 1)
Quarter: 2023Q4

REPORT INFORMATION
  Report Type: Spontaneous
  Country: US (occurrence: US)
  Receive Date: 20231222
  Receipt Date: 20231222
  Transmission Date: 20240110
  Serious: Yes (Other)
  Sender: FDA-Public Use
  Company Number: US-BEH-2023166780

PATIENT
  Age: 21 Year
  Sex: Male

DRUGS (4)
  1. IDELVION [Suspect]
     Active Substance: COAGULATION FACTOR IX RECOMBINANT HUMAN
     Indication: Factor IX deficiency
     Dosage: 4300 INTERNATIONAL UNIT PRN
     Route: 042
     Dates: start: 202301
  2. IDELVION [Suspect]
     Active Substance: COAGULATION FACTOR IX RECOMBINANT HUMAN
     Indication: Factor IX deficiency
     Dosage: 4300 INTERNATIONAL UNIT PRN
     Route: 042
     Dates: start: 202301
  3. IDELVION [Suspect]
     Active Substance: COAGULATION FACTOR IX RECOMBINANT HUMAN
     Dosage: 4300 INTERNATIONAL UNIT, EVERY 12 DAYS
     Route: 042
     Dates: start: 202301
  4. IDELVION [Suspect]
     Active Substance: COAGULATION FACTOR IX RECOMBINANT HUMAN
     Dosage: 4300 INTERNATIONAL UNIT, EVERY 12 DAYS
     Route: 042
     Dates: start: 202301

REACTIONS (4)
  - Haemarthrosis [Recovered/Resolved]
  - Haemarthrosis [Recovered/Resolved]
  - Haemarthrosis [Recovered/Resolved]
  - Endodontic procedure [Recovered/Resolved]

NARRATIVE: CASE EVENT DATE: 20230705
